FAERS Safety Report 23578178 (Version 1)
Quarter: 2024Q1

REPORT INFORMATION
  Report Type: Spontaneous
  Country: US (occurrence: US)
  Receive Date: 20240229
  Receipt Date: 20240229
  Transmission Date: 20240410
  Serious: No
  Sender: FDA-Public Use
  Company Number: US-PADAGIS-2024PAD00256

PATIENT

DRUGS (4)
  1. TROSPIUM CHLORIDE ER [Suspect]
     Active Substance: TROSPIUM CHLORIDE
     Indication: Incontinence
     Dosage: UNK, UNK
     Route: 065
     Dates: start: 2018, end: 202303
  2. SODIUM CHLORIDE [Concomitant]
     Active Substance: SODIUM CHLORIDE
     Indication: Nasopharyngitis
     Dosage: UNK
     Route: 065
  3. PREGABALIN [Concomitant]
     Active Substance: PREGABALIN
     Indication: Product used for unknown indication
     Dosage: UNK
     Route: 065
  4. HERBALS [Concomitant]
     Active Substance: HERBALS
     Indication: Ill-defined disorder
     Dosage: UNK
     Route: 065

REACTIONS (16)
  - Upper respiratory tract infection [Recovered/Resolved]
  - Eye pruritus [Unknown]
  - Ear dryness [Unknown]
  - Dry throat [Unknown]
  - Insomnia [Unknown]
  - Pruritus [Unknown]
  - Pruritus [Unknown]
  - Nasal pruritus [Unknown]
  - Ear pruritus [Unknown]
  - Throat irritation [Unknown]
  - Upper-airway cough syndrome [Unknown]
  - Illness [None]
  - Nasal dryness [Unknown]
  - Dry eye [Unknown]
  - Drug intolerance [Unknown]
  - Product use in unapproved indication [Unknown]

NARRATIVE: CASE EVENT DATE: 20221101
